FAERS Safety Report 7313748-6 (Version None)
Quarter: 2011Q1

REPORT INFORMATION
  Report Type: 
  Country: None (occurrence: None)
  Receive Date: 20110225
  Receipt Date: 20110214
  Transmission Date: 20110831
  Serious: Yes (Hospitalization)
  Sender: FDA-Public Use
  Company Number: US-CELGENEUS-163-21880-11012104

PATIENT
  Sex: Female

DRUGS (5)
  1. DIFLUCAN [Concomitant]
     Route: 065
  2. REVLIMID [Suspect]
     Route: 048
     Dates: start: 20100908, end: 20101216
  3. HYTRIN [Concomitant]
     Route: 065
  4. REVLIMID [Suspect]
     Route: 048
     Dates: start: 20110106
  5. LOZOL [Concomitant]
     Route: 065

REACTIONS (5)
  - HYPERHIDROSIS [None]
  - FATIGUE [None]
  - PYREXIA [None]
  - PANCYTOPENIA [None]
  - HEPATOSPLENIC CANDIDIASIS [None]
